FAERS Safety Report 11717119 (Version 3)
Quarter: 2015Q4

REPORT INFORMATION
  Report Type: Spontaneous
  Country: US (occurrence: US)
  Receive Date: 20151104
  Receipt Date: 20151120
  Transmission Date: 20160304
  Serious: No
  Sender: FDA-Public Use
  Company Number: US-ELI_LILLY_AND_COMPANY-US201107006002

PATIENT
  Age: 60 Year
  Sex: Female

DRUGS (7)
  1. FORTEO [Suspect]
     Active Substance: TERIPARATIDE
     Dosage: 20 UG, QD
  2. FORTEO [Suspect]
     Active Substance: TERIPARATIDE
     Dosage: 20 UG, QD
  3. PREDNISONE. [Concomitant]
     Active Substance: PREDNISONE
  4. FORTEO [Suspect]
     Active Substance: TERIPARATIDE
     Indication: SENILE OSTEOPOROSIS
     Dosage: 20 UG, QD
  5. ORENCIA [Concomitant]
     Active Substance: ABATACEPT
     Indication: RHEUMATOID ARTHRITIS
     Dosage: UNK, MONTHLY (1/M)
     Route: 042
  6. FORTEO [Suspect]
     Active Substance: TERIPARATIDE
     Dosage: 20 UG, QD
  7. FORTEO [Suspect]
     Active Substance: TERIPARATIDE
     Dosage: 20 UG, QD

REACTIONS (32)
  - Bronchitis [Recovering/Resolving]
  - White blood cell count increased [Unknown]
  - Nasal congestion [Unknown]
  - Haematocrit increased [Unknown]
  - Sinusitis [Recovering/Resolving]
  - Mean cell volume decreased [Unknown]
  - Mean cell haemoglobin decreased [Unknown]
  - Lymphocyte count decreased [Unknown]
  - Eosinophil count decreased [Unknown]
  - Headache [Unknown]
  - Chronic obstructive pulmonary disease [Unknown]
  - Oropharyngeal pain [Unknown]
  - Mean cell haemoglobin concentration decreased [Unknown]
  - Monocyte count abnormal [Unknown]
  - Arthralgia [Unknown]
  - Pulmonary congestion [Unknown]
  - Red blood cell sedimentation rate increased [Unknown]
  - Blood creatinine increased [Unknown]
  - Basophil count increased [Unknown]
  - Bone pain [Unknown]
  - C-reactive protein increased [Unknown]
  - Red blood cell count increased [Unknown]
  - Platelet count increased [Unknown]
  - Pain [Unknown]
  - Arthritis [Unknown]
  - Cataract [Recovering/Resolving]
  - Nasopharyngitis [Unknown]
  - Bone pain [Not Recovered/Not Resolved]
  - Lower respiratory tract infection [Unknown]
  - Haemoglobin increased [Unknown]
  - Neutrophil count increased [Unknown]
  - Productive cough [Unknown]

NARRATIVE: CASE EVENT DATE: 20120516
